FAERS Safety Report 4410916-8 (Version None)
Quarter: 2004Q3

REPORT INFORMATION
  Report Type: 
  Country: None (occurrence: None)
  Receive Date: 20040728
  Receipt Date: 20040728
  Transmission Date: 20050211
  Serious: Yes (Other)
  Sender: FDA-Public Use
  Company Number: None

PATIENT
  Age: 26 Year
  Sex: Female
  Weight: 81.6475 kg

DRUGS (1)
  1. NORGESTIMATE AND ETHINYL ESTRADIOL [Suspect]
     Dosage: 1 DAILY ORAL
     Route: 048
     Dates: start: 20040509, end: 20040728

REACTIONS (6)
  - ALOPECIA [None]
  - HEADACHE [None]
  - METRORRHAGIA [None]
  - MOOD ALTERED [None]
  - NAUSEA [None]
  - PHARMACEUTICAL PRODUCT COMPLAINT [None]
